FAERS Safety Report 7530821-8 (Version None)
Quarter: 2011Q2

REPORT INFORMATION
  Report Type: 
  Country: None (occurrence: None)
  Receive Date: 20110607
  Receipt Date: 20110602
  Transmission Date: 20111010
  Serious: Yes (Hospitalization)
  Sender: FDA-Public Use
  Company Number: US-GILEAD-2011-0038626

PATIENT
  Sex: Female
  Weight: 93.524 kg

DRUGS (23)
  1. LETAIRIS [Suspect]
     Indication: SLEEP APNOEA SYNDROME
  2. PROVENTIL [Concomitant]
  3. ALBUTEROL SULFATE AUTOHALER [Concomitant]
  4. DIAZEPAM [Concomitant]
  5. PREDNISONE [Concomitant]
  6. LETAIRIS [Suspect]
     Indication: CONNECTIVE TISSUE DISORDER
  7. SINGULAIR [Concomitant]
  8. OMEPRAZOLE [Concomitant]
  9. COUMADIN [Concomitant]
  10. LASIX [Concomitant]
  11. ADVAIR DISKUS 100/50 [Concomitant]
  12. PLAQUENIL [Concomitant]
  13. GABAPENTIN [Concomitant]
  14. LETAIRIS [Suspect]
     Indication: EMPHYSEMA
  15. LEVAQUIN [Concomitant]
  16. LETAIRIS [Suspect]
     Indication: PULMONARY HYPERTENSION
     Route: 048
     Dates: start: 20100925
  17. DUONEB [Concomitant]
  18. DIOVAN [Concomitant]
  19. OXYGEN [Concomitant]
  20. SPIRIVA [Concomitant]
  21. XALATAN [Concomitant]
  22. LORATADINE [Concomitant]
  23. REVATIO [Concomitant]

REACTIONS (3)
  - BLOOD IRON DECREASED [None]
  - ANAEMIA [None]
  - RED BLOOD CELL COUNT DECREASED [None]
